FAERS Safety Report 10499108 (Version 1)
Quarter: 2014Q4

REPORT INFORMATION
  Report Type: Spontaneous
  Country: US (occurrence: US)
  Receive Date: 20141006
  Receipt Date: 20141006
  Transmission Date: 20150528
  Serious: No
  Sender: FDA-Public Use
  Company Number: US-AMGEN INC.-USASP2014000999

PATIENT
  Age: 59 Year
  Sex: Male

DRUGS (2)
  1. INLYTA [Concomitant]
     Active Substance: AXITINIB
     Dosage: 5 MG, BID
     Dates: end: 201312
  2. XGEVA [Suspect]
     Active Substance: DENOSUMAB
     Indication: PRODUCT USED FOR UNKNOWN INDICATION
     Route: 065

REACTIONS (6)
  - Sensitivity of teeth [Unknown]
  - Toothache [Not Recovered/Not Resolved]
  - Pain in jaw [Not Recovered/Not Resolved]
  - Ear pain [Not Recovered/Not Resolved]
  - Temporomandibular joint syndrome [Unknown]
  - Neck pain [Not Recovered/Not Resolved]
